FAERS Safety Report 18650011 (Version 1)
Quarter: 2020Q4

REPORT INFORMATION
  Report Type: Spontaneous
  Country: FR (occurrence: FR)
  Receive Date: 20201222
  Receipt Date: 20201222
  Transmission Date: 20210114
  Serious: Yes (Hospitalization)
  Sender: FDA-Public Use
  Company Number: NVSC2020FR332330

PATIENT
  Age: 25 Year
  Sex: Male
  Weight: 70 kg

DRUGS (2)
  1. SOLUPRED (PREDNISOLONE METASULFOBENZOATE SODIUM) [Suspect]
     Active Substance: PREDNISOLONE SODIUM METAZOATE
     Indication: TONSILLITIS
     Dosage: 1 DF,QD
     Route: 048
     Dates: start: 20200115, end: 20200120
  2. CEFPODOXIME SANDOZ [Suspect]
     Active Substance: CEFPODOXIME
     Indication: TONSILLITIS
     Dosage: 1 DF
     Route: 048
     Dates: start: 20200115, end: 20200120

REACTIONS (2)
  - Erythema multiforme [Recovered/Resolved]
  - Toxic skin eruption [Recovered/Resolved]

NARRATIVE: CASE EVENT DATE: 20200124
